FAERS Safety Report 9397535 (Version 6)
Quarter: 2014Q2

REPORT INFORMATION
  Report Type: Spontaneous
  Country: US (occurrence: US)
  Receive Date: 20130712
  Receipt Date: 20140416
  Transmission Date: 20141212
  Serious: Yes (Hospitalization, Disabling, Other)
  Sender: FDA-Public Use
  Company Number: US-UCBSA-091168

PATIENT
  Age: 47 Year
  Sex: Male
  Weight: 150 kg

DRUGS (16)
  1. VIMPAT [Suspect]
     Indication: CONVULSION
     Dosage: STRENGTH: 100 MG AND DAILY DOSE: 200 MG, EXPIRY DATE: 30-JUN-2016
     Route: 048
     Dates: start: 20121023
  2. VIMPAT [Suspect]
     Indication: CONVULSION
     Dosage: UNKNOWN DOSE
  3. CLONIDINE [Concomitant]
     Indication: HYPERTENSION
     Route: 048
  4. HYDRALAZINE [Concomitant]
     Indication: HYPERTENSION
     Route: 048
     Dates: start: 201210
  5. METFORMIN [Concomitant]
     Indication: BLOOD GLUCOSE
     Route: 048
     Dates: start: 201109
  6. METFORMIN [Concomitant]
     Indication: DIABETES MELLITUS
     Route: 048
     Dates: start: 201109
  7. DILANTIN [Concomitant]
     Indication: EPILEPSY
     Dates: start: 201109
  8. DILANTIN [Concomitant]
     Indication: EPILEPSY
     Dosage: TWO IN AM AND THREE IN PM AND WEANING DOWN
     Route: 048
  9. ADGORENEX [Concomitant]
     Indication: ANTICOAGULANT THERAPY
     Dosage: 200/25
  10. BYSTOLIC [Concomitant]
     Indication: HYPERTENSION
     Route: 048
  11. TERAZOSIN [Concomitant]
  12. SIMVASTINE [Concomitant]
     Indication: BLOOD CHOLESTEROL INCREASED
  13. CITALOPRAM [Concomitant]
     Indication: ANXIETY
     Route: 048
  14. ASA [Concomitant]
     Indication: ISCHAEMIC HEART DISEASE PROPHYLAXIS
  15. KEPPRA [Concomitant]
     Indication: CONVULSION
     Dosage: THREE IN AM AND THREE IN NIGHT
     Route: 048
     Dates: start: 201403
  16. LIPITOR [Concomitant]
     Indication: BLOOD CHOLESTEROL
     Dosage: ONCE DAILY
     Route: 048

REACTIONS (4)
  - Cerebrovascular accident [Recovering/Resolving]
  - Transient ischaemic attack [Unknown]
  - Confusional state [Unknown]
  - Weight decreased [Unknown]
